FAERS Safety Report 17040608 (Version 1)
Quarter: 2019Q4

REPORT INFORMATION
  Report Type: Spontaneous
  Country: NL (occurrence: NL)
  Receive Date: 20191117
  Receipt Date: 20191117
  Transmission Date: 20200122
  Serious: Yes (Other)
  Sender: FDA-Public Use
  Company Number: NL-ELI_LILLY_AND_COMPANY-NL201911002966

PATIENT
  Sex: Female
  Weight: 45 kg

DRUGS (1)
  1. EMGALITY [Suspect]
     Active Substance: GALCANEZUMAB-GNLM
     Indication: MIGRAINE
     Dosage: 1 DOSAGE FORM, UNKNOWN
     Route: 065

REACTIONS (6)
  - Vomiting [Unknown]
  - Headache [Unknown]
  - Weight decreased [Unknown]
  - Impatience [Unknown]
  - Abdominal pain upper [Unknown]
  - Nausea [Unknown]
